FAERS Safety Report 4341959-0 (Version None)
Quarter: 2004Q2

REPORT INFORMATION
  Report Type: 
  Country: None (occurrence: None)
  Receive Date: 20040420
  Receipt Date: 20040222
  Transmission Date: 20050107
  Serious: Yes (Other)
  Sender: FDA-Public Use
  Company Number: PHNU2004DE00996

PATIENT
  Sex: Male
  Weight: 90 kg

DRUGS (13)
  1. SANDIMMUNE [Suspect]
     Indication: CORNEAL TRANSPLANT
     Dosage: 300MG/DAY
     Dates: start: 19990101
  2. SANDIMMUNE [Suspect]
     Dosage: 240MG/DAY
  3. PENTOXIFYLLINE [Suspect]
     Dates: start: 20040208, end: 20040217
  4. DECORTIN [Concomitant]
     Dosage: 5 MG, QD
  5. LEGALON [Concomitant]
  6. COSOPT [Concomitant]
  7. INFLANEFRAN [Concomitant]
  8. ALPHAGAN [Concomitant]
  9. ADSORBONAC [Concomitant]
  10. DIOVAN [Suspect]
     Dosage: 80MG/DAY
  11. DIOVAN [Suspect]
     Dosage: 160MG/DAY
  12. ZANTIC                                  /GFR/ [Concomitant]
  13. HYLOCOMOD [Concomitant]

REACTIONS (8)
  - ALANINE AMINOTRANSFERASE INCREASED [None]
  - DEAFNESS [None]
  - DRUG LEVEL INCREASED [None]
  - GAMMA-GLUTAMYLTRANSFERASE INCREASED [None]
  - LIVER FUNCTION TEST ABNORMAL [None]
  - NUCLEAR MAGNETIC RESONANCE IMAGING ABNORMAL [None]
  - UVEITIS [None]
  - VASCULITIS [None]
